FAERS Safety Report 4807149-X (Version None)
Quarter: 2005Q4

REPORT INFORMATION
  Report Type: 
  Country: None (occurrence: None)
  Receive Date: 20051024
  Receipt Date: 20051013
  Transmission Date: 20060501
  Serious: Yes (Life-Threatening, Hospitalization)
  Sender: FDA-Public Use
  Company Number: 200513846EU

PATIENT
  Age: 53 Year
  Sex: Female

DRUGS (2)
  1. FUROSEMIDE [Suspect]
     Indication: OEDEMA PERIPHERAL
  2. HYDROCHLOROTHIAZIDE [Suspect]
     Indication: HYPERTENSION

REACTIONS (6)
  - BUNDLE BRANCH BLOCK RIGHT [None]
  - ELECTROCARDIOGRAM QT PROLONGED [None]
  - HYPOKALAEMIA [None]
  - HYPONATRAEMIA [None]
  - METABOLIC ALKALOSIS [None]
  - RESPIRATORY ALKALOSIS [None]
